FAERS Safety Report 5165341-1 (Version None)
Quarter: 2006Q4

REPORT INFORMATION
  Report Type: 
  Country: None (occurrence: None)
  Receive Date: 20061206
  Receipt Date: 20061201
  Transmission Date: 20070319
  Serious: Yes (Life-Threatening)
  Sender: FDA-Public Use
  Company Number: 2006UW26883

PATIENT
  Age: 58 Year
  Sex: Male

DRUGS (7)
  1. OMEPRAZOLE [Suspect]
     Route: 048
     Dates: start: 20060705, end: 20060912
  2. CIPROFLOXACIN [Suspect]
     Route: 042
     Dates: start: 20060825, end: 20060914
  3. ZANTAC [Suspect]
     Dates: start: 20060915, end: 20060915
  4. TRANDATE [Suspect]
     Dates: start: 20060907, end: 20060917
  5. VFEND [Suspect]
     Dates: start: 20060727, end: 20060911
  6. ROVALCYTE [Suspect]
     Dates: start: 20060816, end: 20060911
  7. PROSTATITIS MEDICATION [Concomitant]
     Indication: PROSTATITIS

REACTIONS (1)
  - BONE MARROW FAILURE [None]
